FAERS Safety Report 5594524-1 (Version None)
Quarter: 2008Q1

REPORT INFORMATION
  Report Type: 
  Country: None (occurrence: None)
  Receive Date: 20080115
  Receipt Date: 20071231
  Transmission Date: 20080703
  Serious: Yes (Disabling, Other)
  Sender: FDA-Public Use
  Company Number: AECAN200800004

PATIENT
  Age: 47 Year
  Sex: Female

DRUGS (7)
  1. GAMIMUNE [Suspect]
     Indication: DRUG USE FOR UNKNOWN INDICATION
     Dosage: 50 GM;QM;IV
     Route: 042
  2. FLOVENT [Concomitant]
  3. METOCLOPRAMIDE [Concomitant]
  4. MORPHINE [Concomitant]
  5. PREDNISONE [Concomitant]
  6. VENTOLIN [Concomitant]
  7. WARFARIN [Concomitant]

REACTIONS (1)
  - CEREBROVASCULAR ACCIDENT [None]
